FAERS Safety Report 7794388-1 (Version None)
Quarter: 2011Q4

REPORT INFORMATION
  Report Type: 
  Country: None (occurrence: None)
  Receive Date: 20111004
  Receipt Date: 20110314
  Transmission Date: 20120403
  Serious: No
  Sender: FDA-Public Use
  Company Number: US-BAYER-2011-022857

PATIENT
  Age: 53 Year
  Sex: Male

DRUGS (5)
  1. CARBAMAZEPINE [Concomitant]
     Dosage: 20 MG, QD
  2. CITALOPRAM HYDROBROMIDE [Concomitant]
  3. SIMVASTATIN [Concomitant]
     Dosage: 40 MG, QD
  4. LEVITRA [Suspect]
     Indication: ERECTILE DYSFUNCTION
     Dosage: 20 MG, 4/MONTH
     Route: 048
     Dates: start: 20060101
  5. PERPHENAZINE [Concomitant]
     Dosage: 8 MG, UNK

REACTIONS (1)
  - ERECTILE DYSFUNCTION [None]
